FAERS Safety Report 9520557 (Version 3)
Quarter: 2013Q4

REPORT INFORMATION
  Report Type: Spontaneous
  Country: NZ (occurrence: NZ)
  Receive Date: 20130913
  Receipt Date: 20131014
  Transmission Date: 20140711
  Serious: Yes (Hospitalization)
  Sender: FDA-Public Use
  Company Number: NZ-BIOGENIDEC-2013BI078298

PATIENT
  Age: 66 Year
  Sex: Female

DRUGS (1)
  1. AVONEX [Suspect]
     Indication: PRODUCT USED FOR UNKNOWN INDICATION
     Route: 030
     Dates: start: 201304

REACTIONS (7)
  - Erythromelalgia [Recovered/Resolved]
  - Bipolar disorder [Unknown]
  - Speech disorder [Unknown]
  - Weight decreased [Unknown]
  - Influenza like illness [Recovered/Resolved]
  - Musculoskeletal pain [Unknown]
  - Vomiting [Unknown]
